FAERS Safety Report 6137367-2 (Version None)
Quarter: 2009Q1

REPORT INFORMATION
  Report Type: 
  Country: None (occurrence: None)
  Receive Date: 20090325
  Receipt Date: 20080625
  Transmission Date: 20090719
  Serious: Yes (Hospitalization)
  Sender: FDA-Public Use
  Company Number: ACETADOTE_033

PATIENT
  Age: 22 Year
  Sex: Male

DRUGS (1)
  1. ACETADOTE [Suspect]
     Indication: OVERDOSE
     Dosage: 62MG LOADING DOSE
     Dates: start: 20080625, end: 20080626

REACTIONS (1)
  - MEDICATION ERROR [None]
